FAERS Safety Report 7608695-6 (Version None)
Quarter: 2011Q3

REPORT INFORMATION
  Report Type: 
  Country: None (occurrence: None)
  Receive Date: 20110713
  Receipt Date: 20110713
  Transmission Date: 20111222
  Serious: Yes (Other)
  Sender: FDA-Public Use
  Company Number: None

PATIENT
  Sex: Female
  Weight: 102.0593 kg

DRUGS (1)
  1. LIPITOR [Suspect]
     Indication: BLOOD CHOLESTEROL INCREASED
     Dosage: 80MG 1X DAILY PO
     Route: 048
     Dates: start: 19980815, end: 20110101

REACTIONS (3)
  - CRYING [None]
  - MUSCLE SPASMS [None]
  - SCREAMING [None]
